FAERS Safety Report 6836261-9 (Version None)
Quarter: 2010Q3

REPORT INFORMATION
  Report Type: 
  Country: None (occurrence: None)
  Receive Date: 20100713
  Receipt Date: 20090818
  Transmission Date: 20110219
  Serious: No
  Sender: FDA-Public Use
  Company Number: US-TYCO HEALTHCARE/MALLINCKRODT-T200901559

PATIENT
  Sex: Female
  Weight: 66.667 kg

DRUGS (12)
  1. OXYCODONE HCL [Suspect]
     Indication: BREAKTHROUGH PAIN
     Dosage: 5 MG, QD
     Route: 048
     Dates: start: 20050101
  2. FENTANYL [Suspect]
     Indication: PAIN
     Dosage: 100 UG, Q 72 HOURS
     Route: 062
     Dates: start: 20050101
  3. XANAX [Concomitant]
     Indication: ANXIETY
     Dosage: 1 TAB BID
     Route: 048
  4. XANAX [Concomitant]
     Dosage: 1 1/2 TAB QHS
     Route: 048
  5. EFFEXOR [Concomitant]
     Indication: DEPRESSION
     Dosage: 37.5 MG, BID
     Route: 048
  6. TRAZODONE HYDROCHLORIDE [Concomitant]
     Dosage: 100 MG, 1 1/2 TAB QHS
     Route: 048
  7. HYDROXYZINE [Concomitant]
     Indication: AFFECTIVE DISORDER
     Dosage: ONE CAP TID
     Route: 048
  8. PROPRANOLOL [Concomitant]
     Indication: HEADACHE
     Dosage: UNK
     Route: 048
  9. CRESTOR [Concomitant]
     Indication: BLOOD CHOLESTEROL INCREASED
     Dosage: 10 MG, QD
     Route: 048
  10. AMBIEN [Concomitant]
     Indication: SLEEP DISORDER
     Dosage: 5 MG, QHS
     Route: 048
  11. NAPROXEN [Concomitant]
     Indication: BREAKTHROUGH PAIN
     Dosage: 500 MG, PRN
     Route: 048
  12. IBUPROFEN [Concomitant]
     Indication: BREAKTHROUGH PAIN
     Dosage: 800 MG, PRN
     Route: 048

REACTIONS (3)
  - DRUG INEFFECTIVE [None]
  - DRUG SCREEN NEGATIVE [None]
  - INTENTIONAL DRUG MISUSE [None]
